FAERS Safety Report 10986481 (Version 1)
Quarter: 2015Q2

REPORT INFORMATION
  Report Type: Spontaneous
  Country: SE (occurrence: None)
  Receive Date: 20150402
  Receipt Date: 20150402
  Transmission Date: 20150821
  Serious: Yes (Death, Hospitalization)
  Sender: FDA-Public Use
  Company Number: 2015108470

PATIENT
  Age: 93 Year
  Sex: Male

DRUGS (2)
  1. FRAGMIN [Suspect]
     Active Substance: DALTEPARIN SODIUM
     Indication: DEEP VEIN THROMBOSIS
     Dates: start: 201501
  2. WARAN [Suspect]
     Active Substance: WARFARIN SODIUM
     Indication: DEEP VEIN THROMBOSIS
     Dates: start: 201501

REACTIONS (5)
  - Muscle haemorrhage [None]
  - Renal failure [None]
  - Fall [None]
  - Back injury [None]
  - Haemorrhagic anaemia [None]

NARRATIVE: CASE EVENT DATE: 20150124
